FAERS Safety Report 10204161 (Version 1)
Quarter: 2014Q2

REPORT INFORMATION
  Report Type: Spontaneous
  Country: US (occurrence: US)
  Receive Date: 20140529
  Receipt Date: 20140529
  Transmission Date: 20141212
  Serious: Yes (Hospitalization, Other)
  Sender: FDA-Public Use
  Company Number: US-GILEAD-2014-0103686

PATIENT
  Age: 37 Year
  Sex: Female

DRUGS (18)
  1. LETAIRIS [Suspect]
     Indication: PULMONARY HYPERTENSION
     Dosage: 5 MG, QD
     Route: 065
     Dates: start: 20140319
  2. QVAR [Concomitant]
  3. NITROFURANTOIN [Concomitant]
  4. ALBUTEROL SULFATE [Concomitant]
  5. ALPRAZOLAM [Concomitant]
  6. OXYCODONE [Concomitant]
  7. FLUTICASONE [Concomitant]
  8. MIRALAX                            /00754501/ [Concomitant]
  9. ONDANSETRON [Concomitant]
  10. RISPERIDONE [Concomitant]
  11. FOLIC ACID [Concomitant]
  12. FUROSEMIDE [Concomitant]
  13. SPIRONOLACTONE [Concomitant]
  14. MAGNESIUM OXIDE [Concomitant]
  15. PANTOPRAZOLE [Concomitant]
  16. XIFAXAN [Concomitant]
  17. KEPPRA [Concomitant]
  18. GENERLAC [Concomitant]

REACTIONS (1)
  - Myocardial infarction [Unknown]
